FAERS Safety Report 24629975 (Version 1)
Quarter: 2024Q4

REPORT INFORMATION
  Report Type: Spontaneous
  Country: DE (occurrence: DE)
  Receive Date: 20241118
  Receipt Date: 20241118
  Transmission Date: 20250115
  Serious: Yes (Other)
  Sender: REGENERON
  Company Number: DE-BAYER-2024A163014

PATIENT
  Age: 82 Year
  Sex: Female

DRUGS (1)
  1. EYLEA HD [Suspect]
     Active Substance: AFLIBERCEPT
     Indication: Product used for unknown indication
     Dosage: 8 MG EVERY 8-10 WEEKS, SOLUTION FOR INJECTION, 114.3 MG/ML
     Route: 031
     Dates: start: 20240626, end: 20241030

REACTIONS (3)
  - Visual impairment [Recovering/Resolving]
  - Ocular hyperaemia [Recovering/Resolving]
  - Eye pain [Recovering/Resolving]

NARRATIVE: CASE EVENT DATE: 20241101
